FAERS Safety Report 7585381-2 (Version None)
Quarter: 2011Q3

REPORT INFORMATION
  Report Type: 
  Country: None (occurrence: None)
  Receive Date: 20110701
  Receipt Date: 20090316
  Transmission Date: 20111222
  Serious: Yes (Other)
  Sender: FDA-Public Use
  Company Number: US-BAYER-200915569NA

PATIENT
  Age: 48 Year
  Sex: Male
  Weight: 79.365 kg

DRUGS (12)
  1. GLUCOPHAGE [Concomitant]
     Dosage: UNK
     Dates: start: 19990101
  2. OPTIRAY 300 [Concomitant]
     Indication: CATHETERISATION CARDIAC
     Dosage: 170 CC
     Dates: start: 19991220
  3. PACKED RED BLOOD CELLS [Concomitant]
     Dosage: 1000 ML, UNK
     Route: 042
     Dates: start: 19991221
  4. TRASYLOL [Suspect]
     Indication: CORONARY ARTERY BYPASS
     Dosage: 200 ML PUMP PRIME
     Route: 042
     Dates: start: 19991221, end: 19991221
  5. HEPARIN [Concomitant]
     Dosage: 10000 U, UNK
     Route: 042
     Dates: start: 19991221
  6. HYDRALAZINE HCL [Concomitant]
     Dosage: UNK
     Dates: start: 19990101
  7. VANCOMYCIN [Concomitant]
     Dosage: 1 G, UNK
     Route: 042
     Dates: start: 19991221
  8. PROTAMINE SULFATE [Concomitant]
     Dosage: 225 G, UNK
     Route: 042
     Dates: start: 19991221
  9. TRASYLOL [Suspect]
     Dosage: 100 ML (INFUSION DATA ILLEGIBLE)
     Route: 042
     Dates: start: 19991221, end: 19991221
  10. LOPRESSOR [Concomitant]
     Route: 048
  11. ANCEF [Concomitant]
     Dosage: 2 G, UNK
     Route: 042
     Dates: start: 19991221
  12. MANNITOL [Concomitant]
     Dosage: 25 G, UNK
     Route: 042
     Dates: start: 19991221

REACTIONS (8)
  - INJURY [None]
  - ANXIETY [None]
  - RENAL FAILURE [None]
  - ANHEDONIA [None]
  - UNEVALUABLE EVENT [None]
  - FEAR [None]
  - PAIN [None]
  - DEPRESSION [None]
